FAERS Safety Report 23717477 (Version 1)
Quarter: 2024Q2

REPORT INFORMATION
  Report Type: Spontaneous
  Country: GB (occurrence: GB)
  Receive Date: 20240408
  Receipt Date: 20240408
  Transmission Date: 20240716
  Serious: Yes (Other)
  Sender: FDA-Public Use
  Company Number: GB-ADVANZ PHARMA-E2B_00016821

PATIENT

DRUGS (8)
  1. PREDNISOLONE [Suspect]
     Active Substance: PREDNISOLONE
     Indication: Cholangitis sclerosing
     Dosage: UNK (PREDNISOLONE USED ON AN INTERMITTENT BASIS FOR ACUTE DISEASE EXACERBATIONS)
  2. PREDNISOLONE [Suspect]
     Active Substance: PREDNISOLONE
     Indication: Crohn^s disease
     Dosage: 5 MG, QD
  3. PREDNISOLONE [Suspect]
     Active Substance: PREDNISOLONE
     Indication: Crohn^s disease
     Dosage: UNK (HIGHER DOSE)
  4. PREDNISOLONE [Suspect]
     Active Substance: PREDNISOLONE
     Dosage: UNK  (DOSE REDUCTION)
  5. ADALIMUMAB [Suspect]
     Active Substance: ADALIMUMAB\ISOPROPYL ALCOHOL
     Indication: Cholangitis sclerosing
     Dosage: 40 UG (EVERY 10 DAYS)
     Dates: start: 2012
  6. ADALIMUMAB [Suspect]
     Active Substance: ADALIMUMAB\ISOPROPYL ALCOHOL
     Indication: Crohn^s disease
  7. MERCAPTOPURINE [Suspect]
     Active Substance: MERCAPTOPURINE
     Indication: Cholangitis sclerosing
     Dosage: 100 MG, QD
     Dates: end: 201604
  8. MERCAPTOPURINE [Suspect]
     Active Substance: MERCAPTOPURINE
     Indication: Crohn^s disease

REACTIONS (2)
  - Hepatitis E [Recovered/Resolved]
  - Intentional product use issue [Recovered/Resolved]
